FAERS Safety Report 22177866 (Version 1)
Quarter: 2023Q2

REPORT INFORMATION
  Report Type: Spontaneous
  Country: NL (occurrence: NL)
  Receive Date: 20230405
  Receipt Date: 20230405
  Transmission Date: 20230722
  Serious: Yes (Other)
  Sender: FDA-Public Use
  Company Number: None

PATIENT
  Sex: Male
  Weight: 84 kg

DRUGS (3)
  1. CONCERTA [Suspect]
     Active Substance: METHYLPHENIDATE HYDROCHLORIDE
     Indication: Attention deficit hyperactivity disorder
     Route: 065
     Dates: start: 20230301, end: 20230313
  2. FLUTICASONE PROPIONATE [Concomitant]
     Active Substance: FLUTICASONE PROPIONATE
     Dosage: NEUSSPRAY, 50 UG/DOSIS (MICROGRAM PER DOSIS)
  3. ALLERFRE [Concomitant]
     Dosage: TABLET, 10 MG (MILLIGRAM)

REACTIONS (5)
  - Arrhythmia [Recovered/Resolved]
  - Disturbance in attention [Recovered/Resolved]
  - Aggression [Recovered/Resolved]
  - Penile size reduced [Recovered/Resolved]
  - Product substitution issue [Unknown]
